FAERS Safety Report 4712195-0 (Version None)
Quarter: 2005Q3

REPORT INFORMATION
  Report Type: 
  Country: None (occurrence: None)
  Receive Date: 20050712
  Receipt Date: 20050701
  Transmission Date: 20060218
  Serious: Yes (Hospitalization)
  Sender: FDA-Public Use
  Company Number: GB-BRISTOL-MYERS SQUIBB COMPANY-13022058

PATIENT
  Age: 82 Year
  Sex: Male

DRUGS (6)
  1. PRAVASTATIN SODIUM [Suspect]
     Route: 048
     Dates: end: 20050603
  2. RAMIPRIL [Suspect]
     Route: 048
     Dates: end: 20050603
  3. GLICLAZIDE [Suspect]
     Route: 048
     Dates: end: 20050603
  4. CLOPIDOGREL BISULFATE [Concomitant]
     Route: 048
  5. OMEPRAZOLE [Concomitant]
     Route: 048
  6. CLINDAMYCIN [Concomitant]
     Route: 048
     Dates: start: 20050524, end: 20050531

REACTIONS (2)
  - HEPATOMEGALY [None]
  - LIVER FUNCTION TEST ABNORMAL [None]
